FAERS Safety Report 10560642 (Version 1)
Quarter: 2014Q4

REPORT INFORMATION
  Report Type: Spontaneous
  Country: US (occurrence: None)
  Receive Date: 20141031
  Receipt Date: 20141031
  Transmission Date: 20150529
  Serious: Yes (Life-Threatening, Hospitalization)
  Sender: FDA-Public Use
  Company Number: None

PATIENT
  Age: 75 Year
  Sex: Male

DRUGS (14)
  1. BUPROPION [Concomitant]
     Active Substance: BUPROPION
  2. LISINOPRIL. [Suspect]
     Active Substance: LISINOPRIL
     Route: 048
  3. METFORMIN [Concomitant]
     Active Substance: METFORMIN HYDROCHLORIDE
  4. MULTIVITAMIN [Concomitant]
     Active Substance: VITAMINS
  5. COREG [Concomitant]
     Active Substance: CARVEDILOL
  6. CELEBREX [Concomitant]
     Active Substance: CELECOXIB
  7. BRIMONIDINE [Concomitant]
     Active Substance: BRIMONIDINE\BRIMONIDINE TARTRATE
  8. LISINOPRIL. [Concomitant]
     Active Substance: LISINOPRIL
  9. XALATAN [Concomitant]
     Active Substance: LATANOPROST
  10. PRILOSEC [Concomitant]
     Active Substance: OMEPRAZOLE MAGNESIUM
  11. PLAVIX [Concomitant]
     Active Substance: CLOPIDOGREL BISULFATE
  12. PRAVASTATIN [Concomitant]
     Active Substance: PRAVASTATIN\PRAVASTATIN SODIUM
  13. REGLAN [Concomitant]
     Active Substance: METOCLOPRAMIDE HYDROCHLORIDE
  14. JANUVIA [Concomitant]
     Active Substance: SITAGLIPTIN PHOSPHATE

REACTIONS (1)
  - Angioedema [None]

NARRATIVE: CASE EVENT DATE: 20141026
